FAERS Safety Report 5244214-X (Version None)
Quarter: 2007Q1

REPORT INFORMATION
  Report Type: 
  Country: None (occurrence: None)
  Receive Date: 20070216
  Receipt Date: 20070131
  Transmission Date: 20070707
  Serious: Yes (Death, Life-Threatening)
  Sender: FDA-Public Use
  Company Number: 2007JP000424

PATIENT
  Age: 63 Year
  Sex: Male
  Weight: 47 kg

DRUGS (16)
  1. FUNGUARD(MICAFUNGIN) INJECTION [Suspect]
     Indication: BRONCHOPULMONARY ASPERGILLOSIS
     Dosage: SEE IMAGE
     Route: 041
     Dates: start: 20070116, end: 20070118
  2. FUNGUARD(MICAFUNGIN) INJECTION [Suspect]
     Indication: BRONCHOPULMONARY ASPERGILLOSIS
     Dosage: SEE IMAGE
     Route: 041
     Dates: start: 20070119, end: 20070119
  3. FUNGUARD(MICAFUNGIN) INJECTION [Suspect]
     Indication: BRONCHOPULMONARY ASPERGILLOSIS
     Dosage: SEE IMAGE
     Route: 041
     Dates: start: 20070124, end: 20070124
  4. SULPERAZON (SULBACTAM SODIUM) INJECTION [Suspect]
     Indication: RESPIRATORY TRACT INFECTION
     Dosage: SEE IMAGE
     Dates: start: 20070104, end: 20070112
  5. SULPERAZON (SULBACTAM SODIUM) INJECTION [Suspect]
     Indication: RESPIRATORY TRACT INFECTION
     Dosage: SEE IMAGE
     Dates: start: 20070124
  6. MUCODYNE (CARBOCISTEINE) TABLET [Concomitant]
  7. MUCOSOLVAN (AMBROXOL HDYROCHLORIDE) TABLET [Concomitant]
  8. NAUZELIN (DOMPERIDONE) TABLET [Concomitant]
  9. KLARICID (CLARITHYROMYCIN) TABLET [Concomitant]
  10. SEL TOUCH (FELBINAC) TAPE [Concomitant]
  11. S.M. (DIASTASE, TAKA, SODIUM BICARBONATE, SIMALDRATE, GLYCYRRHIZA GLAB [Concomitant]
  12. TOBRAMYCIN SULFATE [Concomitant]
  13. OMEPRAL [Concomitant]
  14. ISODINE (POVIDONE-IODINE) MOUTH WASH [Concomitant]
  15. ADONA (CARBAZOCHROME SODIUM SULFOANTE) [Concomitant]
  16. TRANSAMIN (TRANEXAMIC ACID) [Concomitant]

REACTIONS (12)
  - BACK PAIN [None]
  - BRADYCARDIA [None]
  - CARDIAC ARREST [None]
  - CYANOSIS [None]
  - HAEMATURIA [None]
  - HAEMOPTYSIS [None]
  - HAEMORRHAGIC DIATHESIS [None]
  - HEART RATE INCREASED [None]
  - LOSS OF CONSCIOUSNESS [None]
  - OXYGEN SATURATION DECREASED [None]
  - RESPIRATORY FAILURE [None]
  - SHOCK [None]
